FAERS Safety Report 7636550-4 (Version None)
Quarter: 2011Q3

REPORT INFORMATION
  Report Type: 
  Country: None (occurrence: None)
  Receive Date: 20110719
  Receipt Date: 20110705
  Transmission Date: 20111222
  Serious: Yes (Other)
  Sender: FDA-Public Use
  Company Number: JHP201100275

PATIENT
  Age: 67 Year
  Sex: Female

DRUGS (11)
  1. SUXAMETHONIUM (SUXAMETHONIUM CHLORIDE) [Concomitant]
  2. MIVACURIUM CHLORIDE (MIVACURIUM CHLORIDE) [Concomitant]
  3. ISOFLURANE [Concomitant]
  4. AMLODIPINE (AMLODIPINE MALEATE) [Concomitant]
  5. KETALAR [Suspect]
     Indication: ANALGESIC THERAPY
     Dosage: 100 UG/KG/MIN FROM INCISION UNTIL SUTURE - TOTAL 402 MG, INTRAVENOUS
     Route: 042
  6. REMIFENTANIL (REMIFENTANIL) [Suspect]
     Indication: ANALGESIC THERAPY
     Dosage: 0.75 UG/KG/MIN, INTRAVENOUS
     Route: 042
  7. MIDAZOLAM HYDROCHLORIDE [Concomitant]
  8. NEOSTIGMINE (NEOSTIGMINE) [Concomitant]
  9. ENALAPRIL MALEATE [Concomitant]
  10. PROPOFOL [Concomitant]
  11. TIMOLOL MALEATE [Concomitant]

REACTIONS (4)
  - BRONCHOSPASM [None]
  - VISION BLURRED [None]
  - ABNORMAL DREAMS [None]
  - DELAYED RECOVERY FROM ANAESTHESIA [None]
